FAERS Safety Report 8721718 (Version 2)
Quarter: 2012Q4

REPORT INFORMATION
  Report Type: 
  Country: ES (occurrence: ES)
  Receive Date: 20120814
  Receipt Date: 20120911
  Transmission Date: 20130627
  Serious: Yes (Hospitalization, Other)
  Sender: FDA-Public Use
  Company Number: ES-RANBAXY-2012RR-58778

PATIENT
  Age: 47 Year
  Sex: Female

DRUGS (3)
  1. CLARITHROMYCIN [Suspect]
     Indication: HELICOBACTER INFECTION
     Dosage: UNK
     Route: 065
  2. OMEPRAZOLE [Suspect]
     Indication: HELICOBACTER INFECTION
     Dosage: UNK
     Route: 065
  3. AMOXICILLIN [Suspect]
     Indication: HELICOBACTER INFECTION
     Dosage: UNK
     Route: 065

REACTIONS (1)
  - Bipolar I disorder [Recovering/Resolving]
